FAERS Safety Report 5026489-5 (Version None)
Quarter: 2006Q2

REPORT INFORMATION
  Report Type: 
  Country: None (occurrence: None)
  Receive Date: 20060615
  Receipt Date: 20060613
  Transmission Date: 20061013
  Serious: Yes (Other)
  Sender: FDA-Public Use
  Company Number: 2006SE03326

PATIENT
  Age: 73 Year
  Sex: Male

DRUGS (1)
  1. BLOPRESS [Suspect]
     Route: 048
     Dates: start: 20050401, end: 20050601

REACTIONS (1)
  - STEVENS-JOHNSON SYNDROME [None]
